FAERS Safety Report 8170338-3 (Version None)
Quarter: 2012Q1

REPORT INFORMATION
  Report Type: 
  Country: None (occurrence: None)
  Receive Date: 20120228
  Receipt Date: 20120215
  Transmission Date: 20120608
  Serious: Yes (Other)
  Sender: FDA-Public Use
  Company Number: ES-ASTELLAS-2012US002164

PATIENT
  Age: 27 Year
  Sex: Male

DRUGS (1)
  1. AMBISOME [Suspect]
     Indication: FUNGAL INFECTION
     Dosage: UNK
     Route: 042
     Dates: start: 20120201, end: 20120201

REACTIONS (3)
  - PALPITATIONS [None]
  - FEELING ABNORMAL [None]
  - HYPERHIDROSIS [None]
